FAERS Safety Report 7563180-5 (Version None)
Quarter: 2011Q2

REPORT INFORMATION
  Report Type: 
  Country: None (occurrence: None)
  Receive Date: 20110621
  Receipt Date: 20110621
  Transmission Date: 20111010
  Serious: No
  Sender: FDA-Public Use
  Company Number: None

PATIENT
  Age: 71 Year
  Sex: Female
  Weight: 139.7079 kg

DRUGS (1)
  1. AMOXICILLIN [Suspect]
     Indication: ORAL SURGERY
     Dosage: 500 MG 3 X'S DAY PO
     Route: 048
     Dates: start: 20110617, end: 20110620

REACTIONS (2)
  - MEDICATION RESIDUE [None]
  - DIARRHOEA [None]
